FAERS Safety Report 7652832-4 (Version None)
Quarter: 2011Q3

REPORT INFORMATION
  Report Type: 
  Country: None (occurrence: None)
  Receive Date: 20110803
  Receipt Date: 20110725
  Transmission Date: 20111222
  Serious: Yes (Other)
  Sender: FDA-Public Use
  Company Number: AU-JNJFOC-20110709953

PATIENT
  Sex: Female

DRUGS (3)
  1. SIMPONI [Suspect]
     Indication: RHEUMATOID ARTHRITIS
     Route: 058
     Dates: start: 20101029
  2. METHOTREXATE [Concomitant]
  3. SIMPONI [Suspect]
     Route: 058
     Dates: start: 20110630

REACTIONS (3)
  - LACERATION [None]
  - FALL [None]
  - ASTHMA [None]
